FAERS Safety Report 20784434 (Version 1)
Quarter: 2022Q2

REPORT INFORMATION
  Report Type: Spontaneous
  Country: DE (occurrence: DE)
  Receive Date: 20220504
  Receipt Date: 20220504
  Transmission Date: 20220721
  Serious: Yes (Other)
  Sender: FDA-Public Use
  Company Number: DE-ASTELLAS-2022US016201

PATIENT
  Age: 67 Year
  Sex: Male

DRUGS (2)
  1. ISAVUCONAZOLE [Suspect]
     Active Substance: ISAVUCONAZOLE
     Indication: Product used for unknown indication
     Dosage: UNK, UNKNOWN FREQ.
     Route: 048
  2. GILTERITINIB [Concomitant]
     Active Substance: GILTERITINIB
     Indication: Product used for unknown indication
     Dosage: UNK UNK, UNKNOWN FREQ.
     Route: 065

REACTIONS (2)
  - Pneumonia fungal [Unknown]
  - C-reactive protein increased [Unknown]
